FAERS Safety Report 12084332 (Version 1)
Quarter: 2016Q1

REPORT INFORMATION
  Report Type: Spontaneous
  Country: US (occurrence: US)
  Receive Date: 20160217
  Receipt Date: 20160217
  Transmission Date: 20160526
  Serious: No
  Sender: FDA-Public Use
  Company Number: US-TARO-2016TAR00027

PATIENT
  Sex: Male

DRUGS (1)
  1. DESOXIMETASONE OINTMENT USP 0.05% [Suspect]
     Active Substance: DESOXIMETASONE
     Indication: LANGERHANS^ CELL HISTIOCYTOSIS
     Dosage: UNK
     Route: 061
     Dates: start: 20160104

REACTIONS (1)
  - Drug ineffective [Not Recovered/Not Resolved]

NARRATIVE: CASE EVENT DATE: 201601
